FAERS Safety Report 25150478 (Version 1)
Quarter: 2025Q2

REPORT INFORMATION
  Report Type: Spontaneous
  Country: IT (occurrence: IT)
  Receive Date: 20250402
  Receipt Date: 20250402
  Transmission Date: 20250716
  Serious: Yes (Other)
  Sender: AZURITY PHARMACEUTICALS
  Company Number: IT-AZURITY PHARMACEUTICALS, INC.-AZR202503-000904

PATIENT
  Age: 51 Year
  Sex: Male

DRUGS (1)
  1. IVERMECTIN [Suspect]
     Active Substance: IVERMECTIN
     Indication: Rosacea
     Route: 061

REACTIONS (2)
  - Hepatic cytolysis [Unknown]
  - Product use in unapproved indication [Unknown]
